FAERS Safety Report 13632065 (Version 1)
Quarter: 2017Q2

REPORT INFORMATION
  Report Type: Spontaneous
  Country: FR (occurrence: FR)
  Receive Date: 20170608
  Receipt Date: 20170608
  Transmission Date: 20170830
  Serious: Yes (Hospitalization)
  Sender: FDA-Public Use
  Company Number: FR-ABBVIE-17P-056-2002104-00

PATIENT
  Age: 15 Month
  Sex: Male

DRUGS (8)
  1. MICROPAKINE [Suspect]
     Active Substance: VALPROIC ACID
     Route: 048
  2. MICROPAKINE [Suspect]
     Active Substance: VALPROIC ACID
     Indication: EPILEPSY
     Route: 048
     Dates: start: 20160622
  3. MEASLES VIRUS VACCINE, LIVE, ATTENUATED [Suspect]
     Active Substance: MEASLES VIRUS STRAIN ENDERS^ ATTENUATED EDMONSTON LIVE ANTIGEN
     Indication: IMMUNISATION
     Route: 065
     Dates: start: 20170425
  4. URBANYL [Concomitant]
     Active Substance: CLOBAZAM
     Indication: PRODUCT USED FOR UNKNOWN INDICATION
     Dates: start: 20161102
  5. MICROPAKINE [Suspect]
     Active Substance: VALPROIC ACID
     Route: 048
  6. MEASLES-MUMPS-RUBELLA VIRUS VACCINE [Suspect]
     Active Substance: MEASLES-MUMPS-RUBELLA VIRUS VACCINE
     Indication: IMMUNISATION
     Route: 065
     Dates: start: 20170425
  7. MEASLES-RUBELLA VIRUS VACCINE, LIVE NOS [Suspect]
     Active Substance: MEASLES-RUBELLA VIRUS VACCINE, LIVE
     Indication: IMMUNISATION
     Route: 065
     Dates: start: 20170425
  8. DIACOMIT [Concomitant]
     Active Substance: STIRIPENTOL
     Indication: PRODUCT USED FOR UNKNOWN INDICATION
     Dates: start: 20161230

REACTIONS (8)
  - Cell death [None]
  - Pancytopenia [Recovering/Resolving]
  - Pyrexia [Recovered/Resolved]
  - Hyperammonaemia [Not Recovered/Not Resolved]
  - Drug level increased [None]
  - Blood fibrinogen decreased [Recovering/Resolving]
  - Liver injury [Recovering/Resolving]
  - Seizure [Recovered/Resolved]

NARRATIVE: CASE EVENT DATE: 20170505
